FAERS Safety Report 16936946 (Version 1)
Quarter: 2019Q4

REPORT INFORMATION
  Report Type: Spontaneous
  Country: GB (occurrence: GB)
  Receive Date: 20191018
  Receipt Date: 20191018
  Transmission Date: 20200122
  Serious: Yes (Hospitalization)
  Sender: FDA-Public Use
  Company Number: PHHY2019GB226606

PATIENT
  Age: 91 Year
  Sex: Female

DRUGS (1)
  1. VOLTAROL [Suspect]
     Active Substance: DICLOFENAC SODIUM
     Indication: PRODUCT USED FOR UNKNOWN INDICATION
     Dosage: 60 G, UNK
     Route: 065

REACTIONS (5)
  - Application site ulcer [Unknown]
  - Skin ulcer [Unknown]
  - Blister [Unknown]
  - General physical health deterioration [Unknown]
  - Asthenia [Unknown]
